FAERS Safety Report 6245650-5 (Version None)
Quarter: 2009Q2

REPORT INFORMATION
  Report Type: 
  Country: None (occurrence: None)
  Receive Date: 20090625
  Receipt Date: 20090413
  Transmission Date: 20091009
  Serious: No
  Sender: FDA-Public Use
  Company Number: US-ASTRAZENECA-2009UW09157

PATIENT
  Age: 47 Year
  Sex: Female

DRUGS (2)
  1. ZOLADEX [Suspect]
     Indication: BREAST CANCER
     Route: 058
     Dates: start: 20030701, end: 20080701
  2. TAMOXIFEN CITRATE [Concomitant]
     Route: 048

REACTIONS (1)
  - MENSTRUAL DISORDER [None]
